FAERS Safety Report 8488691-X (Version None)
Quarter: 2012Q2

REPORT INFORMATION
  Report Type: 
  Country: None (occurrence: None)
  Receive Date: 20120626
  Receipt Date: 20120613
  Transmission Date: 20120825
  Serious: Yes (Hospitalization)
  Sender: FDA-Public Use
  Company Number: AUR-APL-2012-02693

PATIENT
  Age: 77 Year
  Sex: Female
  Weight: 88.17 kg

DRUGS (17)
  1. LEVOTHYROXINE SODIUM [Suspect]
     Indication: THYROID OPERATION
     Dosage: 175 MCG (175 MCG, 1 IN 1 D), UNKNOWN
     Dates: start: 20120307, end: 20120601
  2. FOLIC ACID [Concomitant]
  3. CLONIDINE [Concomitant]
  4. VENLAFAXINE HCL [Suspect]
     Indication: PRODUCT USED FOR UNKNOWN INDICATION
     Dosage: 75 MG (75 MG, 1 IN 1 D), UNKNOWN
     Dates: start: 20120611
  5. CARVEDILOL [Concomitant]
  6. TRICOR [Concomitant]
  7. LOSARTAN POTASSIUM [Concomitant]
  8. VITAMIN B12 [Concomitant]
  9. ATIVAN [Concomitant]
  10. JANUVIA [Concomitant]
  11. PRISTIQ [Suspect]
     Indication: DEPRESSION
     Dosage: 50 MG (50 MG, 1 IN 1 D), ORAL
     Route: 048
     Dates: end: 20120601
  12. GLIPIZIDE [Concomitant]
  13. PREDNISONE TAB [Concomitant]
  14. PREMARIN [Concomitant]
  15. ASPIRIN [Concomitant]
  16. HYDROCHLOROTHIAZIDE [Concomitant]
  17. OMEPRAZOLE [Concomitant]

REACTIONS (5)
  - DIARRHOEA [None]
  - MEDICATION RESIDUE [None]
  - MALAISE [None]
  - DRUG INTOLERANCE [None]
  - ABDOMINAL DISCOMFORT [None]
